FAERS Safety Report 10006891 (Version 2)
Quarter: 2014Q1

REPORT INFORMATION
  Report Type: Spontaneous
  Country: US (occurrence: US)
  Receive Date: 20140313
  Receipt Date: 20140313
  Transmission Date: 20141002
  Serious: No
  Sender: FDA-Public Use
  Company Number: US-GILEAD-2012-0063512

PATIENT
  Sex: Female

DRUGS (4)
  1. LETAIRIS [Suspect]
     Indication: PULMONARY HYPERTENSION
     Dosage: 10 MG, QD
     Route: 048
     Dates: start: 20120323
  2. LETAIRIS [Suspect]
     Indication: HEART DISEASE CONGENITAL
  3. REMODULIN [Concomitant]
  4. REVATIO [Concomitant]

REACTIONS (1)
  - Pruritus [Unknown]
